FAERS Safety Report 5921199-1 (Version None)
Quarter: 2008Q4

REPORT INFORMATION
  Report Type: 
  Country: None (occurrence: None)
  Receive Date: 20081016
  Receipt Date: 20081008
  Transmission Date: 20090506
  Serious: No
  Sender: FDA-Public Use
  Company Number: US-B.I. PHARMACEUTICALS,INC./RIDGEFIELD-2008-BP-15608BP

PATIENT
  Sex: Male

DRUGS (3)
  1. VIRAMUNE [Suspect]
     Indication: HIV INFECTION
     Dosage: 200MG
     Dates: start: 20080711, end: 20080811
  2. VIRAMUNE [Suspect]
     Dosage: 400MG
     Dates: start: 20080812
  3. TRUVADA [Concomitant]
     Indication: HIV INFECTION
     Dates: start: 20080711

REACTIONS (1)
  - RASH [None]
